FAERS Safety Report 18303832 (Version 2)
Quarter: 2020Q3

REPORT INFORMATION
  Report Type: Report from Study
  Country: SA (occurrence: SA)
  Receive Date: 20200924
  Receipt Date: 20200925
  Transmission Date: 20201103
  Serious: Yes (Other)
  Sender: FDA-Public Use
  Company Number: SA-CELLTRION INC.-2020SA028109

PATIENT

DRUGS (29)
  1. MESALAZINE [Concomitant]
     Active Substance: MESALAMINE
     Indication: COLITIS ULCERATIVE
     Dosage: 4/60 G/ML ONCE DAILY
     Route: 054
     Dates: start: 20190409, end: 20190509
  2. HYDROCORTISONE. [Concomitant]
     Active Substance: HYDROCORTISONE
     Dosage: 100 MG ONCE DAILY
     Route: 040
     Dates: start: 20190718, end: 20190718
  3. HYDROCORTISONE. [Concomitant]
     Active Substance: HYDROCORTISONE
     Dosage: 100 MG ONCE DAILY
     Route: 040
     Dates: start: 20200102, end: 20200102
  4. ACETAMINOPHEN. [Concomitant]
     Active Substance: ACETAMINOPHEN
     Dosage: 1000 MG ONCE DAILY
     Route: 048
     Dates: start: 20190912, end: 20190912
  5. ACETAMINOPHEN. [Concomitant]
     Active Substance: ACETAMINOPHEN
     Dosage: 1000 MG ONCE DAILY
     Route: 048
     Dates: start: 20191107, end: 20191107
  6. REMSIMA [Suspect]
     Active Substance: INFLIXIMAB
     Dosage: 500 MG
     Route: 041
     Dates: start: 20190718, end: 20190718
  7. PREDNISONE. [Concomitant]
     Active Substance: PREDNISONE
     Indication: COLITIS ULCERATIVE
     Dosage: 40 MG ONCE DAILY
     Route: 048
     Dates: start: 20190409, end: 20190423
  8. HYDROCORTISONE. [Concomitant]
     Active Substance: HYDROCORTISONE
     Indication: PREMEDICATION
     Dosage: 100 MG ONCE DAILY
     Route: 040
     Dates: start: 20190424, end: 20190424
  9. HYDROCORTISONE. [Concomitant]
     Active Substance: HYDROCORTISONE
     Dosage: 100 MG ONCE DAILY
     Route: 040
     Dates: start: 20190523, end: 20190523
  10. HYDROCORTISONE. [Concomitant]
     Active Substance: HYDROCORTISONE
     Dosage: 100 MG ONCE DAILY
     Route: 040
     Dates: start: 20190912, end: 20190912
  11. ACETAMINOPHEN. [Concomitant]
     Active Substance: ACETAMINOPHEN
     Indication: PREMEDICATION
     Dosage: 1000 MG ONCE DAILY
     Route: 048
     Dates: start: 20190424, end: 20190424
  12. REMSIMA [Suspect]
     Active Substance: INFLIXIMAB
     Dosage: 500 MG
     Route: 041
     Dates: start: 20190424, end: 20190424
  13. REMSIMA [Suspect]
     Active Substance: INFLIXIMAB
     Dosage: 1000 MG
     Route: 041
     Dates: start: 20190912, end: 20190912
  14. DIPHENHYDRAMINE. [Concomitant]
     Active Substance: DIPHENHYDRAMINE
     Dosage: 25 MG ONCE DAILY
     Route: 048
     Dates: start: 20190718, end: 20190718
  15. REMSIMA [Suspect]
     Active Substance: INFLIXIMAB
     Indication: COLITIS ULCERATIVE
     Dosage: 500 MG
     Route: 041
     Dates: start: 20190410, end: 20190410
  16. REMSIMA [Suspect]
     Active Substance: INFLIXIMAB
     Dosage: 500 MG
     Route: 041
     Dates: start: 20190523, end: 20190523
  17. REMSIMA [Suspect]
     Active Substance: INFLIXIMAB
     Dosage: 1000 MG
     Route: 041
     Dates: start: 20191107, end: 20191107
  18. DIPHENHYDRAMINE. [Concomitant]
     Active Substance: DIPHENHYDRAMINE
     Indication: PREMEDICATION
     Dosage: 25 MG ONCE DAILY
     Route: 048
     Dates: start: 20190424, end: 20190424
  19. DIPHENHYDRAMINE. [Concomitant]
     Active Substance: DIPHENHYDRAMINE
     Dosage: 25 MG ONCE DAILY
     Route: 048
     Dates: start: 20191107, end: 20191107
  20. HYDROCORTISONE. [Concomitant]
     Active Substance: HYDROCORTISONE
     Dosage: 100 MG ONCE DAILY
     Route: 040
     Dates: start: 20191107, end: 20191107
  21. ACETAMINOPHEN. [Concomitant]
     Active Substance: ACETAMINOPHEN
     Dosage: 1000 MG ONCE DAILY
     Route: 048
     Dates: start: 20190718, end: 20190718
  22. DIPHENHYDRAMINE. [Concomitant]
     Active Substance: DIPHENHYDRAMINE
     Dosage: 25 MG ONCE DAILY
     Route: 048
     Dates: start: 20190912, end: 20190912
  23. ACETAMINOPHEN. [Concomitant]
     Active Substance: ACETAMINOPHEN
     Dosage: 1000 MG ONCE DAILY
     Route: 048
     Dates: start: 20190523, end: 20190523
  24. ACETAMINOPHEN. [Concomitant]
     Active Substance: ACETAMINOPHEN
     Dosage: 1000 MG ONCE DAILY
     Route: 048
     Dates: start: 20200102, end: 20200102
  25. ACETAMINOPHEN. [Concomitant]
     Active Substance: ACETAMINOPHEN
     Dosage: 1000 MG ONCE DAILY
     Route: 048
     Dates: start: 20200303, end: 20200303
  26. REMSIMA [Suspect]
     Active Substance: INFLIXIMAB
     Dosage: 1000 MG
     Route: 041
     Dates: start: 20200102, end: 20200102
  27. DIPHENHYDRAMINE. [Concomitant]
     Active Substance: DIPHENHYDRAMINE
     Dosage: 25 MG ONCE DAILY
     Route: 048
     Dates: start: 20190523, end: 20190523
  28. DIPHENHYDRAMINE. [Concomitant]
     Active Substance: DIPHENHYDRAMINE
     Dosage: 25 MG ONCE DAILY
     Route: 048
     Dates: start: 20200102, end: 20200102
  29. DIPHENHYDRAMINE. [Concomitant]
     Active Substance: DIPHENHYDRAMINE
     Dosage: 25 MG ONCE DAILY
     Route: 048
     Dates: start: 20200303, end: 20200303

REACTIONS (4)
  - Product use issue [Unknown]
  - Haematochezia [Recovered/Resolved]
  - Overdose [Unknown]
  - Underdose [Unknown]

NARRATIVE: CASE EVENT DATE: 20190912
